FAERS Safety Report 20496480 (Version 1)
Quarter: 2022Q1

REPORT INFORMATION
  Report Type: Spontaneous
  Country: CN (occurrence: CN)
  Receive Date: 20220221
  Receipt Date: 20220221
  Transmission Date: 20220423
  Serious: Yes (Other)
  Sender: FDA-Public Use
  Company Number: CN-BAYER-2022A024423

PATIENT
  Age: 90 Year
  Sex: Male
  Weight: 65 kg

DRUGS (4)
  1. AVELOX [Suspect]
     Active Substance: MOXIFLOXACIN HYDROCHLORIDE
     Indication: Pneumonia
     Dosage: 0.4 G, QD
     Route: 041
     Dates: start: 20220115, end: 20220117
  2. REPAGLINIDE [Concomitant]
     Active Substance: REPAGLINIDE
     Dosage: 0.5 MG, BID
     Route: 048
     Dates: start: 20211227, end: 20220117
  3. REPAGLINIDE [Concomitant]
     Active Substance: REPAGLINIDE
     Dosage: 0.5 MG, BID
     Route: 048
     Dates: start: 20220120
  4. INDOMETHACIN [Concomitant]
     Active Substance: INDOMETHACIN
     Indication: Pyrexia
     Dosage: 0.05 G
     Route: 054
     Dates: start: 20220115

REACTIONS (4)
  - Unresponsive to stimuli [Recovering/Resolving]
  - Blood glucose decreased [Recovered/Resolved]
  - Hyperhidrosis [None]
  - Listless [Recovering/Resolving]

NARRATIVE: CASE EVENT DATE: 20220116
